FAERS Safety Report 9025481 (Version 3)
Quarter: 2013Q4

REPORT INFORMATION
  Report Type: Spontaneous
  Country: GB (occurrence: GB)
  Receive Date: 20130122
  Receipt Date: 20131001
  Transmission Date: 20140711
  Serious: Yes (Life-Threatening, Hospitalization)
  Sender: FDA-Public Use
  Company Number: GB-PFIZER INC-2013010234

PATIENT
  Age: 91 Year
  Sex: 0

DRUGS (21)
  1. DOXYCYCLINE MONOHYDRATE [Suspect]
     Indication: CHRONIC OBSTRUCTIVE PULMONARY DISEASE
     Dosage: 100 MG, 2X/DAY
     Route: 048
     Dates: start: 20100804
  2. CIPROFLOXACIN [Suspect]
     Indication: UROSEPSIS
     Dosage: 400 MG, 2X/DAY
     Route: 041
     Dates: start: 20110324
  3. CIPROFLOXACIN HCL [Suspect]
     Indication: UROSEPSIS
     Dosage: 500 MG, 2X/DAY
     Route: 048
     Dates: start: 20110325, end: 20110329
  4. LEVOFLOXACIN [Suspect]
     Indication: RENAL FAILURE ACUTE
     Dosage: 500 MG, 2X/DAY
     Route: 048
     Dates: start: 20110130, end: 20110206
  5. LEVOFLOXACIN [Suspect]
     Indication: PNEUMONIA
     Dosage: 500 MG, 2X/DAY
     Dates: start: 20110218, end: 20110225
  6. FLUCLOXACILLIN [Suspect]
     Dosage: 250 MG, 4X/DAY
     Route: 048
     Dates: start: 20090710, end: 20090715
  7. ERTAPENEM [Suspect]
     Indication: URINARY TRACT INFECTION
     Dosage: 1 G, 1X/DAY
     Route: 042
     Dates: start: 20110330, end: 20110331
  8. BENZYLPENICILLIN [Suspect]
     Indication: PNEUMONIA
     Dosage: 600 MG,UNK
     Route: 041
     Dates: start: 20110130
  9. BENZYLPENICILLIN [Suspect]
     Dosage: 1.2 GM , UNK
     Route: 065
     Dates: start: 20110218
  10. ADCAL-D3 [Concomitant]
     Indication: PRODUCT USED FOR UNKNOWN INDICATION
     Dosage: 1 DF, 2X/DAY
     Route: 048
  11. ASPIRIN [Concomitant]
     Indication: PRODUCT USED FOR UNKNOWN INDICATION
     Dosage: 75 MG, 1X/DAY
     Route: 048
  12. ATORVASTATIN [Concomitant]
     Indication: PRODUCT USED FOR UNKNOWN INDICATION
     Dosage: 40 MG, 1X/DAY
     Route: 048
  13. BUMETANIDE [Concomitant]
     Indication: PRODUCT USED FOR UNKNOWN INDICATION
     Dosage: 2 MG, 2X/DAY
     Route: 048
  14. IPRATROPIUM BROMIDE [Concomitant]
     Indication: PRODUCT USED FOR UNKNOWN INDICATION
     Dosage: 500MICROGRAMS/2ML NEBULISER LIQUID FOUR TIMES DAILY
     Route: 050
  15. PARACETAMOL [Concomitant]
     Indication: PRODUCT USED FOR UNKNOWN INDICATION
     Dosage: 500MG - 1G QDS AS NEEDED FOUR TIMES DAILY
     Route: 048
  16. QUETIAPINE [Concomitant]
     Indication: PRODUCT USED FOR UNKNOWN INDICATION
     Dosage: 25 MG, 1X/DAY
     Route: 048
  17. SALBUTAMOL [Concomitant]
     Indication: PRODUCT USED FOR UNKNOWN INDICATION
     Dosage: 5MG/2.5ML NEBULISER LIQUID FOUR TIMES DAILY
     Route: 050
  18. SENNA [Concomitant]
     Indication: PRODUCT USED FOR UNKNOWN INDICATION
     Dosage: 15 MG, 1X/DAY
     Route: 048
  19. THIAMINE [Concomitant]
     Indication: PRODUCT USED FOR UNKNOWN INDICATION
     Dosage: 100 MG, 3X/DAY
     Route: 048
  20. UNIPHYLLIN CONTINUS [Concomitant]
     Indication: PRODUCT USED FOR UNKNOWN INDICATION
     Dosage: 200 MG, 2X/DAY
     Route: 048
  21. VITAMIN B [Concomitant]
     Indication: PRODUCT USED FOR UNKNOWN INDICATION
     Dosage: 1 DF, 1X/DAY
     Route: 048

REACTIONS (7)
  - Clostridium difficile infection [Recovered/Resolved]
  - Confusional state [Unknown]
  - Dysuria [Unknown]
  - Hypotension [Unknown]
  - Urosepsis [Unknown]
  - Diarrhoea [Unknown]
  - Pneumonia [Unknown]
